FAERS Safety Report 12285435 (Version 1)
Quarter: 2016Q2

REPORT INFORMATION
  Report Type: Spontaneous
  Country: US (occurrence: None)
  Receive Date: 20160419
  Receipt Date: 20160419
  Transmission Date: 20160815
  Serious: Yes (Other)
  Sender: FDA-Public Use
  Company Number: None

PATIENT
  Age: 73 Year
  Sex: Male
  Weight: 86.18 kg

DRUGS (1)
  1. FINASTERIDE, 5MG QUALITEST [Suspect]
     Active Substance: FINASTERIDE
     Indication: BENIGN PROSTATIC HYPERPLASIA
     Route: 048
     Dates: start: 20160314, end: 20160417

REACTIONS (4)
  - Disease recurrence [None]
  - Inflammation [None]
  - Blood urine present [None]
  - Pollakiuria [None]

NARRATIVE: CASE EVENT DATE: 20160404
